FAERS Safety Report 7439491-0 (Version None)
Quarter: 2011Q2

REPORT INFORMATION
  Report Type: 
  Country: None (occurrence: None)
  Receive Date: 20110427
  Receipt Date: 20110418
  Transmission Date: 20111010
  Serious: Yes (Other)
  Sender: FDA-Public Use
  Company Number: BR-ASTRAZENECA-2011SE22708

PATIENT
  Age: 17 Year
  Sex: Female
  Weight: 75 kg

DRUGS (4)
  1. SYMBICORT [Suspect]
     Indication: ASTHMA
     Dosage: 80/4.5 MCG ONCE DAILY
     Route: 055
     Dates: start: 20050101, end: 20110401
  2. SYMBICORT [Suspect]
     Dosage: 80/4.5 MCG PRN
     Route: 055
     Dates: start: 20050101, end: 20110401
  3. SYMBICORT [Suspect]
     Dosage: 320/9 MCG
     Route: 055
     Dates: start: 20110401
  4. UNKNOWN [Concomitant]
     Indication: HYPERSENSITIVITY

REACTIONS (4)
  - DYSPNOEA [None]
  - WHEEZING [None]
  - MOUTH BREATHING [None]
  - WEIGHT INCREASED [None]
